FAERS Safety Report 10174349 (Version 1)
Quarter: 2014Q2

REPORT INFORMATION
  Report Type: Spontaneous
  Country: US (occurrence: US)
  Receive Date: 20140515
  Receipt Date: 20140515
  Transmission Date: 20141212
  Serious: No
  Sender: FDA-Public Use
  Company Number: US-PFIZER INC-2014129841

PATIENT
  Sex: Female

DRUGS (2)
  1. LYRICA [Suspect]
     Dosage: 50 MG, DAILY
  2. LYRICA [Suspect]
     Dosage: 100 MG, DAILY

REACTIONS (4)
  - Joint swelling [Unknown]
  - Arthropathy [Unknown]
  - Gait disturbance [Unknown]
  - Peripheral swelling [Unknown]
